FAERS Safety Report 24153425 (Version 3)
Quarter: 2024Q3

REPORT INFORMATION
  Report Type: Spontaneous
  Country: IL (occurrence: IL)
  Receive Date: 20240730
  Receipt Date: 20240904
  Transmission Date: 20241016
  Serious: Yes (Other)
  Sender: TAKEDA
  Company Number: IL-TAKEDA-2024TUS075362

PATIENT
  Age: 41 Year
  Sex: Female

DRUGS (1)
  1. TAKHZYRO [Suspect]
     Active Substance: LANADELUMAB-FLYO
     Indication: Product used for unknown indication
     Dosage: UNK, Q2WEEKS
     Route: 065

REACTIONS (5)
  - Syncope [Recovered/Resolved]
  - Asthenia [Recovered/Resolved]
  - Hereditary angioedema [Unknown]
  - Drug effect less than expected [Unknown]
  - Dizziness [Unknown]
